FAERS Safety Report 10801701 (Version 3)
Quarter: 2015Q1

REPORT INFORMATION
  Report Type: Report from Study
  Country: CA (occurrence: CA)
  Receive Date: 20150217
  Receipt Date: 20150227
  Transmission Date: 20150721
  Serious: Yes (Life-Threatening, Hospitalization, Other)
  Sender: FDA-Public Use
  Company Number: CA-ROCHE-1532138

PATIENT
  Age: 49 Year
  Sex: Male

DRUGS (4)
  1. TRAMADOL [Concomitant]
     Active Substance: TRAMADOL
     Route: 065
     Dates: start: 201407
  2. AVASTIN [Suspect]
     Active Substance: BEVACIZUMAB
     Indication: BRAIN NEOPLASM MALIGNANT
     Route: 042
     Dates: start: 20150115, end: 20150127
  3. DEXAMETHASONE. [Concomitant]
     Active Substance: DEXAMETHASONE
  4. CCNU [Concomitant]
     Active Substance: LOMUSTINE
     Route: 065
     Dates: start: 20141212

REACTIONS (9)
  - Cerebral haemorrhage [Unknown]
  - Drug ineffective [Unknown]
  - Heart rate increased [Unknown]
  - Lethargy [Not Recovered/Not Resolved]
  - Headache [Recovering/Resolving]
  - Body temperature decreased [Unknown]
  - Chest pain [Unknown]
  - Myalgia [Not Recovered/Not Resolved]
  - Hypotension [Unknown]

NARRATIVE: CASE EVENT DATE: 20150212
